FAERS Safety Report 9564039 (Version 3)
Quarter: 2013Q3

REPORT INFORMATION
  Report Type: Report from Study
  Country: CA (occurrence: CA)
  Receive Date: 20130928
  Receipt Date: 20130930
  Transmission Date: 20140515
  Serious: Yes (Other)
  Sender: FDA-Public Use
  Company Number: CA-ROCHE-1196766

PATIENT
  Sex: Female
  Weight: 70.8 kg

DRUGS (12)
  1. RITUXAN [Suspect]
     Indication: RHEUMATOID ARTHRITIS
     Route: 042
     Dates: start: 20110401
  2. PREDNISONE [Suspect]
     Indication: PREMEDICATION
     Route: 048
     Dates: start: 20111007
  3. FUROSEMIDE [Concomitant]
     Indication: PRODUCT USED FOR UNKNOWN INDICATION
     Route: 048
     Dates: end: 2013
  4. LEFLUNOMIDE [Concomitant]
  5. RASILEZ [Concomitant]
  6. CRESTOR [Concomitant]
  7. BISOPROLOL [Concomitant]
  8. PANTOPRAZOLE [Concomitant]
  9. PREDNISONE [Concomitant]
  10. DIPHENHYDRAMINE HCL [Concomitant]
     Indication: PREMEDICATION
     Route: 048
     Dates: start: 20110401
  11. ACETAMINOPHEN [Concomitant]
     Indication: PREMEDICATION
     Route: 048
     Dates: start: 20110401
  12. METHYLPREDNISOLONE [Concomitant]
     Indication: PREMEDICATION
     Route: 042
     Dates: start: 20110401, end: 20110415

REACTIONS (6)
  - Chondritis [Not Recovered/Not Resolved]
  - Diabetes mellitus [Not Recovered/Not Resolved]
  - Weight decreased [Not Recovered/Not Resolved]
  - Drug hypersensitivity [Unknown]
  - Fall [Recovered/Resolved]
  - Arthralgia [Not Recovered/Not Resolved]
